FAERS Safety Report 7904840-3 (Version None)
Quarter: 2011Q4

REPORT INFORMATION
  Report Type: 
  Country: None (occurrence: None)
  Receive Date: 20111109
  Receipt Date: 20111029
  Transmission Date: 20120403
  Serious: Yes (Other)
  Sender: FDA-Public Use
  Company Number: PHHY2011DE96068

PATIENT
  Age: 73 Year
  Sex: Male

DRUGS (20)
  1. TOPAMAX [Concomitant]
     Dosage: 150 MG, UNK
  2. CARBAMAZEPINE [Suspect]
     Dosage: 200 MG, UNK
  3. PIRITRAMIDE [Concomitant]
  4. PHENYTOIN [Concomitant]
     Dosage: 300 MG, UNK
  5. INDOMETHACIN [Concomitant]
  6. AZATHIOPRINE [Concomitant]
  7. PREGABALIN [Concomitant]
  8. ASPIRIN [Concomitant]
     Dosage: 100 MG, UNK
  9. AMLODIPINE [Concomitant]
     Dosage: 10 MG, UNK
  10. LORAZEPAM [Concomitant]
  11. CARBAMAZEPINE [Suspect]
     Indication: TRIGEMINAL NEURALGIA
     Dates: start: 20030101
  12. BACLOFEN [Concomitant]
     Dosage: 25 MG, UNK
  13. LAMOTRIGINE [Concomitant]
     Dosage: 1000 MG, UNK
  14. INTRAVENOUS [Concomitant]
  15. CORTICOSTEROIDS [Concomitant]
  16. MIRTAZAPINE [Concomitant]
  17. TRAMADOL HCL [Concomitant]
  18. OXCARBAZEPINE [Concomitant]
  19. TRYPTAN [Concomitant]
  20. GABAPENTIN [Concomitant]

REACTIONS (5)
  - TRIGEMINAL NEURALGIA [None]
  - SICK SINUS SYNDROME [None]
  - TRANSAMINASES INCREASED [None]
  - SINOATRIAL BLOCK [None]
  - TOXICITY TO VARIOUS AGENTS [None]
